FAERS Safety Report 10607633 (Version 2)
Quarter: 2014Q4

REPORT INFORMATION
  Report Type: Report from Study
  Country: BR (occurrence: BR)
  Receive Date: 20141125
  Receipt Date: 20141125
  Transmission Date: 20150529
  Serious: Yes (Disabling, Other)
  Sender: FDA-Public Use
  Company Number: BR-ABBVIE-14K-020-1243467-00

PATIENT
  Age: 44 Year
  Sex: Female
  Weight: 81 kg

DRUGS (5)
  1. PROPRANOLOL [Concomitant]
     Active Substance: PROPRANOLOL\PROPRANOLOL HYDROCHLORIDE
     Indication: HYPERTENSION
     Route: 048
     Dates: start: 2011
  2. METHOTREXATE [Concomitant]
     Active Substance: METHOTREXATE
     Indication: RHEUMATOID ARTHRITIS
  3. PREDNISONE. [Concomitant]
     Active Substance: PREDNISONE
     Indication: RHEUMATOID ARTHRITIS
     Route: 048
     Dates: start: 2012
  4. METHOTREXATE [Concomitant]
     Active Substance: METHOTREXATE
     Indication: PAIN
     Route: 048
     Dates: start: 2012
  5. HUMIRA [Suspect]
     Active Substance: ADALIMUMAB
     Indication: RHEUMATOID ARTHRITIS
     Route: 058
     Dates: start: 201402, end: 201408

REACTIONS (17)
  - Headache [Recovered/Resolved]
  - Nervousness [Unknown]
  - Activities of daily living impaired [Unknown]
  - Pain [Recovered/Resolved]
  - Insomnia [Unknown]
  - Facial pain [Recovered/Resolved]
  - Feeling hot [Recovered/Resolved]
  - Pain in extremity [Recovering/Resolving]
  - Blood pressure abnormal [Unknown]
  - Depressed mood [Unknown]
  - Peripheral swelling [Not Recovered/Not Resolved]
  - Swelling face [Recovered/Resolved]
  - Headache [Recovered/Resolved]
  - Abdominal pain upper [Unknown]
  - Rheumatoid arthritis [Recovering/Resolving]
  - Suicidal ideation [Unknown]
  - Depression [Unknown]

NARRATIVE: CASE EVENT DATE: 2014
